FAERS Safety Report 7043081-1 (Version None)
Quarter: 2010Q4

REPORT INFORMATION
  Report Type: 
  Country: None (occurrence: None)
  Receive Date: 20101013
  Receipt Date: 20101007
  Transmission Date: 20110411
  Serious: Yes (Hospitalization, Other)
  Sender: FDA-Public Use
  Company Number: US-AMGEN-KDL433103

PATIENT
  Sex: Female
  Weight: 78.1 kg

DRUGS (6)
  1. ENBREL [Suspect]
     Indication: RHEUMATOID ARTHRITIS
     Route: 058
     Dates: start: 20000101
  2. FORTEO [Concomitant]
     Route: 058
     Dates: start: 20100901
  3. SIMVASTATIN [Concomitant]
     Route: 048
  4. TYLENOL [Concomitant]
     Route: 048
  5. VITAMIN D [Concomitant]
     Route: 048
  6. NEOMYCIN W/POLYMIXIN [Concomitant]

REACTIONS (15)
  - ARTHRALGIA [None]
  - ASTHENIA [None]
  - COLITIS [None]
  - DECREASED APPETITE [None]
  - DEFORMITY [None]
  - FATIGUE [None]
  - FINGER DEFORMITY [None]
  - FOOT DEFORMITY [None]
  - JOINT STIFFNESS [None]
  - JOINT SWELLING [None]
  - NAUSEA [None]
  - RHEUMATOID ARTHRITIS [None]
  - SKIN NODULE [None]
  - STRESS [None]
  - SYNOVITIS [None]
